FAERS Safety Report 5392898-8 (Version None)
Quarter: 2007Q3

REPORT INFORMATION
  Report Type: 
  Country: None (occurrence: None)
  Receive Date: 20070721
  Receipt Date: 20070712
  Transmission Date: 20080115
  Serious: Yes (Other)
  Sender: FDA-Public Use
  Company Number: US-PFIZER INC-2007058220

PATIENT
  Sex: Male
  Weight: 117.9 kg

DRUGS (1)
  1. CELEBREX [Suspect]
     Indication: ARTHRALGIA
     Dates: start: 20040505, end: 20050316

REACTIONS (5)
  - AMNESIA [None]
  - HEART RATE DECREASED [None]
  - HYPERTENSION [None]
  - THROMBOSIS [None]
  - TRANSIENT ISCHAEMIC ATTACK [None]
